FAERS Safety Report 7224502-8 (Version None)
Quarter: 2011Q1

REPORT INFORMATION
  Report Type: 
  Country: None (occurrence: None)
  Receive Date: 20110113
  Receipt Date: 20110111
  Transmission Date: 20110831
  Serious: No
  Sender: FDA-Public Use
  Company Number: US-PFIZER INC-2011006954

PATIENT
  Sex: Female

DRUGS (3)
  1. CHANTIX [Suspect]
     Indication: SMOKING CESSATION THERAPY
     Dosage: 0.5 TABLET/DAY
     Route: 048
     Dates: start: 20090101
  2. SEROQUEL [Concomitant]
     Indication: INSOMNIA
  3. PRILOSEC [Concomitant]
     Indication: HELICOBACTER INFECTION
     Dosage: UNK

REACTIONS (4)
  - WEIGHT DECREASED [None]
  - HUNGER [None]
  - DRUG INEFFECTIVE [None]
  - WEIGHT INCREASED [None]
